FAERS Safety Report 17008316 (Version 1)
Quarter: 2019Q4

REPORT INFORMATION
  Report Type: Spontaneous
  Country: NL (occurrence: NL)
  Receive Date: 20191108
  Receipt Date: 20191108
  Transmission Date: 20200122
  Serious: Yes (Life-Threatening, Hospitalization)
  Sender: FDA-Public Use
  Company Number: NL-TEVA-2019-NL-1132550

PATIENT
  Age: 38 Year
  Sex: Male

DRUGS (14)
  1. COLECALCIFEROL [Concomitant]
     Active Substance: CHOLECALCIFEROL
  2. METAMIZOL [Concomitant]
     Active Substance: METAMIZOLE SODIUM
  3. CIPROFLOXACINE [Concomitant]
     Active Substance: CIPROFLOXACIN
     Dates: start: 20190920, end: 20190922
  4. DEXAMFETAMINE [Concomitant]
     Active Substance: DEXTROAMPHETAMINE
     Dosage: 2DD 10 MG
  5. NICOTINEPLEISTER [Concomitant]
  6. VALPROINEZUUR [Concomitant]
     Active Substance: VALPROIC ACID
  7. DEPAKINE 1250MG [Concomitant]
     Dosage: 1DD1 1250 MG
  8. NADROPARINE [Concomitant]
     Active Substance: NADROPARIN
  9. CLOZAPINE TABLET, 100 MG (MILLIGRAM) [Suspect]
     Active Substance: CLOZAPINE
     Indication: SCHIZOPHRENIA
     Dosage: 1DD2 200 MG
     Dates: start: 2015
  10. BENZYLPENICILLINE [Concomitant]
     Active Substance: PENICILLIN G
  11. VIT D [Concomitant]
     Active Substance: VITAMIN D NOS
     Dosage: EVERY TUESDAY
  12. MORFINE [Concomitant]
     Active Substance: MORPHINE
  13. PARACETAMOL [Concomitant]
     Active Substance: ACETAMINOPHEN
  14. CLOBETASOL [Concomitant]
     Active Substance: CLOBETASOL

REACTIONS (1)
  - Embolism [Not Recovered/Not Resolved]

NARRATIVE: CASE EVENT DATE: 20190923
